FAERS Safety Report 6453766-3 (Version None)
Quarter: 2009Q4

REPORT INFORMATION
  Report Type: 
  Country: None (occurrence: None)
  Receive Date: 20091123
  Receipt Date: 20091123
  Transmission Date: 20100525
  Serious: Yes (Other)
  Sender: FDA-Public Use
  Company Number: None

PATIENT
  Age: 42 Year
  Sex: Male
  Weight: 86.1834 kg

DRUGS (2)
  1. METOCLOPRAMIDE [Suspect]
     Indication: NAUSEA
     Dosage: 5MG AS NEEDED ENDOTRACHEAL
     Route: 007
     Dates: start: 20091110, end: 20091121
  2. METOCLOPRAMIDE [Suspect]
     Indication: VOMITING
     Dosage: 5MG AS NEEDED ENDOTRACHEAL
     Route: 007
     Dates: start: 20091110, end: 20091121

REACTIONS (6)
  - DEPRESSION [None]
  - HEADACHE [None]
  - LABYRINTHITIS [None]
  - NIGHTMARE [None]
  - SLEEP TERROR [None]
  - TREMOR [None]
